FAERS Safety Report 15262183 (Version 1)
Quarter: 2018Q3

REPORT INFORMATION
  Report Type: Report from Study
  Country: FR (occurrence: FR)
  Receive Date: 20180809
  Receipt Date: 20180809
  Transmission Date: 20181010
  Serious: Yes (Other)
  Sender: FDA-Public Use
  Company Number: FR-TEVA-2018-FR-936669

PATIENT
  Sex: Female

DRUGS (14)
  1. METHOTREXATE. [Interacting]
     Active Substance: METHOTREXATE
     Route: 037
     Dates: start: 20170301, end: 20170301
  2. HYDROCORTISONE. [Suspect]
     Active Substance: HYDROCORTISONE
     Indication: ACUTE LYMPHOCYTIC LEUKAEMIA
     Dosage: 15 MILLIGRAM DAILY; 15 MG, 1X A DAY
     Route: 037
     Dates: start: 20170314, end: 20170314
  3. VINCRISTINE [Interacting]
     Active Substance: VINCRISTINE
     Indication: ACUTE LYMPHOCYTIC LEUKAEMIA
     Dosage: 1.7 MILLIGRAM DAILY; 1.7 MG, 1X A DAY
     Route: 042
     Dates: start: 20170309, end: 20170309
  4. VINCRISTINE [Interacting]
     Active Substance: VINCRISTINE
     Dosage: 1.7 MILLIGRAM DAILY;
     Route: 042
     Dates: start: 20170316, end: 20170316
  5. METHYLPREDNISOLONE. [Suspect]
     Active Substance: METHYLPREDNISOLONE
     Indication: ACUTE LYMPHOCYTIC LEUKAEMIA
     Dosage: 710 MILLIGRAM DAILY; 70 MG, 1X A DAY
     Route: 048
     Dates: start: 20170309
  6. PEGASPARGASE [Suspect]
     Active Substance: PEGASPARGASE
     Indication: ACUTE LYMPHOCYTIC LEUKAEMIA
     Dosage: 2900 IU (INTERNATIONAL UNIT) DAILY; 2900 IU, 1X A DAY
     Route: 042
     Dates: start: 20170313, end: 20170313
  7. DAUNORUBICIN [Suspect]
     Active Substance: DAUNORUBICIN
     Indication: ACUTE LYMPHOCYTIC LEUKAEMIA
     Dosage: 34.5 MILLIGRAM DAILY; 34.5 MG, 1X/DAY:QD
     Route: 042
     Dates: start: 20170316, end: 20170316
  8. CYTARABINE. [Suspect]
     Active Substance: CYTARABINE
     Indication: ACUTE LYMPHOCYTIC LEUKAEMIA
     Dosage: 30 MILLIGRAM DAILY; 30 MG, 1X A DAY
     Route: 042
     Dates: start: 20170314, end: 20170314
  9. INEXIUM                            /01479302/ [Concomitant]
     Active Substance: ESOMEPRAZOLE MAGNESIUM
     Indication: GASTRITIS
     Route: 048
  10. BACTRIM [Concomitant]
     Active Substance: SULFAMETHOXAZOLE\TRIMETHOPRIM
     Indication: PROPHYLAXIS
     Route: 048
  11. METHOTREXATE. [Suspect]
     Active Substance: METHOTREXATE
     Indication: ACUTE LYMPHOCYTIC LEUKAEMIA
     Dosage: 15 MILLIGRAM DAILY; 15 MG, 1X A DAY
     Route: 037
     Dates: start: 20170314, end: 20170314
  12. DAUNORUBICIN [Suspect]
     Active Substance: DAUNORUBICIN
     Dosage: 34.5 MILLIGRAM DAILY;
     Route: 042
     Dates: start: 20170309, end: 20170309
  13. ONDANSETRON [Concomitant]
     Active Substance: ONDANSETRON
     Indication: PROPHYLAXIS
     Route: 042
  14. FORLAX [Concomitant]
     Active Substance: POLYETHYLENE GLYCOL 4000
     Indication: CONSTIPATION
     Route: 048

REACTIONS (2)
  - Potentiating drug interaction [Unknown]
  - Hypofibrinogenaemia [Recovered/Resolved]

NARRATIVE: CASE EVENT DATE: 20170320
